FAERS Safety Report 21871815 (Version 2)
Quarter: 2025Q2

REPORT INFORMATION
  Report Type: Report from Study
  Country: US (occurrence: US)
  Receive Date: 20230117
  Receipt Date: 20250618
  Transmission Date: 20250716
  Serious: No
  Sender: MERCK SHARP & DOHME LLC
  Company Number: US-009507513-2301USA000753

PATIENT
  Sex: Female

DRUGS (3)
  1. SITAGLIPTIN PHOSPHATE [Suspect]
     Active Substance: SITAGLIPTIN PHOSPHATE
     Indication: Diabetes mellitus
     Dosage: DOSE DESCRIPTION : 100 MILLIGRAM, 1 TABLET DAILY?DAILY DOSE : 100 MILLIGRAM
     Route: 048
     Dates: end: 202111
  2. METFORMIN [Concomitant]
     Active Substance: METFORMIN HYDROCHLORIDE
  3. LISINOPRIL [Concomitant]
     Active Substance: LISINOPRIL

REACTIONS (6)
  - Blood glucose increased [Recovered/Resolved]
  - Therapy cessation [Unknown]
  - Fatigue [Recovered/Resolved]
  - Renal function test abnormal [Unknown]
  - Product dose omission issue [Unknown]
  - Inability to afford medication [Unknown]
